FAERS Safety Report 7134943-5 (Version None)
Quarter: 2010Q4

REPORT INFORMATION
  Report Type: 
  Country: None (occurrence: None)
  Receive Date: 20101104
  Receipt Date: 20101021
  Transmission Date: 20110411
  Serious: Yes (Hospitalization, Other)
  Sender: FDA-Public Use
  Company Number: AEUSA201000282

PATIENT
  Age: 61 Year
  Sex: Male

DRUGS (2)
  1. PROLASTIN-C [Suspect]
     Indication: ALPHA-1 ANTI-TRYPSIN DEFICIENCY
     Dosage: QW; IV
     Route: 042
     Dates: start: 20100401
  2. PROLASTIN [Concomitant]

REACTIONS (9)
  - ASTHENIA [None]
  - BRONCHITIS [None]
  - DIZZINESS [None]
  - DYSPNOEA [None]
  - DYSPNOEA EXERTIONAL [None]
  - INFLUENZA [None]
  - PRODUCT FORMULATION ISSUE [None]
  - TACHYCARDIA [None]
  - UPPER RESPIRATORY TRACT INFECTION [None]
